FAERS Safety Report 23280437 (Version 1)
Quarter: 2023Q4

REPORT INFORMATION
  Report Type: Report from Study
  Country: CA (occurrence: CA)
  Receive Date: 20231211
  Receipt Date: 20231211
  Transmission Date: 20240110
  Serious: Yes (Hospitalization)
  Sender: FDA-Public Use
  Company Number: CA-MTPC-MTDA2023-0028739

PATIENT
  Sex: Female

DRUGS (5)
  1. RADICAVA [Suspect]
     Active Substance: EDARAVONE
     Indication: Amyotrophic lateral sclerosis
     Dosage: UNK
     Route: 048
     Dates: start: 20230927
  2. RADICAVA [Suspect]
     Active Substance: EDARAVONE
     Indication: Amyotrophic lateral sclerosis
     Dosage: UNK
     Route: 048
     Dates: start: 20230927
  3. RADICAVA [Suspect]
     Active Substance: EDARAVONE
     Dosage: MAINTENANCE CYCLE OF SUSPENSION (10 DAYS OUT OF 14 ON, 14 OFF)
     Route: 048
  4. RADICAVA [Suspect]
     Active Substance: EDARAVONE
     Dosage: MAINTENANCE CYCLE OF SUSPENSION (10 DAYS OUT OF 14 ON, 14 OFF)
     Route: 048
  5. RILUTEK [Concomitant]
     Active Substance: RILUZOLE
     Indication: Product used for unknown indication
     Dosage: 50 MILLIGRAM, BID
     Route: 048

REACTIONS (1)
  - Antipsychotic drug level increased [Unknown]
